FAERS Safety Report 24112598 (Version 1)
Quarter: 2024Q3

REPORT INFORMATION
  Report Type: Report from Study
  Country: US (occurrence: None)
  Receive Date: 20240719
  Receipt Date: 20240719
  Transmission Date: 20241016
  Serious: Yes (Hospitalization)
  Sender: ASTRAZENECA
  Company Number: 2019SF86683

PATIENT
  Sex: Female

DRUGS (1)
  1. LYNPARZA [Suspect]
     Active Substance: OLAPARIB
     Indication: Breast cancer female
     Route: 048
     Dates: start: 20191217

REACTIONS (5)
  - Haematological infection [Unknown]
  - Ammonia increased [Unknown]
  - Confusional state [Unknown]
  - Hypotension [Unknown]
  - Decreased appetite [Unknown]
